FAERS Safety Report 4998244-3 (Version None)
Quarter: 2006Q2

REPORT INFORMATION
  Report Type: 
  Country: None (occurrence: None)
  Receive Date: 20060508
  Receipt Date: 20060424
  Transmission Date: 20061013
  Serious: Yes (Hospitalization)
  Sender: FDA-Public Use
  Company Number: US-2006-009737

PATIENT
  Age: 38 Year
  Sex: Male

DRUGS (1)
  1. BETASERON [Suspect]
     Indication: RELAPSING-REMITTING MULTIPLE SCLEROSIS
     Dosage: 2 MIU, EVERY 2D, SUBCUTANEOUS
     Route: 058
     Dates: start: 20060420

REACTIONS (5)
  - BLISTER [None]
  - OESOPHAGEAL DISORDER [None]
  - OESOPHAGEAL PAIN [None]
  - PHARYNGOLARYNGEAL PAIN [None]
  - THROAT LESION [None]
